FAERS Safety Report 6142881-X (Version None)
Quarter: 2009Q2

REPORT INFORMATION
  Report Type: 
  Country: None (occurrence: None)
  Receive Date: 20090403
  Receipt Date: 20090331
  Transmission Date: 20091009
  Serious: Yes (Other)
  Sender: FDA-Public Use
  Company Number: US-PFIZER INC-2006058587

PATIENT
  Sex: Female
  Weight: 61 kg

DRUGS (9)
  1. PROVERA [Suspect]
     Indication: HORMONE REPLACEMENT THERAPY
     Dosage: 5 MG, UNK
     Route: 048
     Dates: start: 19961201, end: 19990101
  2. PROVERA [Suspect]
     Indication: MENOPAUSE
  3. MEDROXYPROGESTERONE AND MEDROXYPROGESTERONE ACETATE [Suspect]
     Indication: HORMONE REPLACEMENT THERAPY
     Dosage: 5 MG, UNK
     Route: 048
     Dates: start: 19990201, end: 20020801
  4. MEDROXYPROGESTERONE AND MEDROXYPROGESTERONE ACETATE [Suspect]
     Indication: MENOPAUSE
  5. PREMARIN [Suspect]
     Indication: HORMONE REPLACEMENT THERAPY
     Dosage: 1.25 MG, UNK
     Dates: start: 19961201, end: 20021001
  6. PREMARIN [Suspect]
     Indication: MENOPAUSE
  7. MEDROXYPROGESTERONE ACETATE [Suspect]
     Indication: MENOPAUSE
     Dosage: 5 MG, UNK
     Dates: start: 20020901, end: 20021001
  8. TOPROL-XL [Concomitant]
     Indication: HYPERTENSION
     Dosage: UNK
     Dates: start: 19970101
  9. LIPITOR [Concomitant]
     Indication: BLOOD CHOLESTEROL INCREASED
     Dosage: UNK
     Dates: start: 19900101

REACTIONS (1)
  - BREAST CANCER FEMALE [None]
